FAERS Safety Report 16925689 (Version 2)
Quarter: 2019Q4

REPORT INFORMATION
  Report Type: Spontaneous
  Country: US (occurrence: US)
  Receive Date: 20191016
  Receipt Date: 20191126
  Transmission Date: 20200122
  Serious: No
  Sender: FDA-Public Use
  Company Number: US-ASTRAZENECA-2019SF33394

PATIENT
  Sex: Female

DRUGS (3)
  1. METFORMIN [Concomitant]
     Active Substance: METFORMIN HYDROCHLORIDE
     Indication: DIABETES MELLITUS
     Route: 048
  2. BYDUREON BCISE [Suspect]
     Active Substance: EXENATIDE
     Indication: DIABETES MELLITUS
     Route: 058
     Dates: start: 20190916
  3. TOUJEO [Concomitant]
     Active Substance: INSULIN GLARGINE

REACTIONS (7)
  - Injection site haemorrhage [Unknown]
  - Injection site discolouration [Not Recovered/Not Resolved]
  - Device leakage [Unknown]
  - Injection site pain [Unknown]
  - Injection site injury [Unknown]
  - Nerve compression [Unknown]
  - Cough [Unknown]

NARRATIVE: CASE EVENT DATE: 20190916
